FAERS Safety Report 4294026-9 (Version None)
Quarter: 2004Q1

REPORT INFORMATION
  Report Type: 
  Country: None (occurrence: None)
  Receive Date: 20040210
  Receipt Date: 20410126
  Transmission Date: 20041129
  Serious: Yes (Hospitalization)
  Sender: FDA-Public Use
  Company Number: 10044474-NA01-13

PATIENT
  Age: 67 Year
  Sex: Male

DRUGS (2)
  1. SODIUM CHLORIDE INJ [Suspect]
     Indication: INTRAVENOUS CATHETER MANAGEMENT
     Dosage: 5 ML, HEPARINIZED SALINE SYRING, FREQUENCY: CATHETER FLUSH PRN
     Dates: start: 20030911
  2. ROCEPHIN ANTIBIOTIC THERAPY [Concomitant]

REACTIONS (2)
  - INFUSION RELATED REACTION [None]
  - PSEUDOMONAL BACTERAEMIA [None]
